FAERS Safety Report 5097731-X (Version None)
Quarter: 2006Q3

REPORT INFORMATION
  Report Type: 
  Country: None (occurrence: None)
  Receive Date: 20060901
  Receipt Date: 20060814
  Transmission Date: 20061208
  Serious: Yes (Other)
  Sender: FDA-Public Use
  Company Number: US200608002891

PATIENT
  Weight: 3.4 kg

DRUGS (4)
  1. PROZAC [Suspect]
     Indication: ANXIETY
     Dosage: 10 MG
     Route: 064
     Dates: start: 20050804, end: 20050815
  2. PROZAC [Suspect]
     Indication: ANXIETY
     Dosage: 10 MG
     Route: 064
     Dates: start: 20051009, end: 20051014
  3. LAMICTAL [Concomitant]
  4. FENTANYL [Concomitant]

REACTIONS (5)
  - DRUG EXPOSURE DURING PREGNANCY [None]
  - NEONATAL RESPIRATORY DEPRESSION [None]
  - POSTPARTUM DEPRESSION [None]
  - RESPIRATORY ARREST [None]
  - WRONG DRUG ADMINISTERED [None]
